FAERS Safety Report 11240956 (Version 1)
Quarter: 2015Q3

REPORT INFORMATION
  Report Type: Spontaneous
  Country: IT (occurrence: IT)
  Receive Date: 20150706
  Receipt Date: 20150706
  Transmission Date: 20151125
  Serious: Yes (Hospitalization)
  Sender: FDA-Public Use
  Company Number: IT-BAYER-2015-368561

PATIENT
  Age: 47 Year
  Sex: Male

DRUGS (1)
  1. ASPIRINA [Suspect]
     Active Substance: ASPIRIN
     Indication: RHINITIS
     Dosage: 2 UNIT DOSES TOTAL
     Route: 048
     Dates: start: 20150619, end: 20150619

REACTIONS (4)
  - Melaena [Recovering/Resolving]
  - Haematemesis [Recovering/Resolving]
  - Haemorrhagic anaemia [Recovering/Resolving]
  - Syncope [Recovering/Resolving]

NARRATIVE: CASE EVENT DATE: 20150620
